FAERS Safety Report 17501998 (Version 1)
Quarter: 2020Q1

REPORT INFORMATION
  Report Type: Spontaneous
  Country: LU (occurrence: LU)
  Receive Date: 20200305
  Receipt Date: 20200305
  Transmission Date: 20200409
  Serious: Yes (Life-Threatening)
  Sender: FDA-Public Use
  Company Number: NVSC2020LU059640

PATIENT
  Age: 69 Year
  Sex: Male

DRUGS (5)
  1. RAPIFEN (ALFENTANIL HYDROCHLORIDE) [Suspect]
     Active Substance: ALFENTANIL HYDROCHLORIDE
     Indication: GENERAL ANAESTHESIA
     Dosage: 1 MG TOTAL
     Route: 042
     Dates: start: 20191130, end: 20191130
  2. TRAMADOL HYDROCHLORIDE. [Suspect]
     Active Substance: TRAMADOL HYDROCHLORIDE
     Indication: PAIN
     Dosage: 100 MG TOTAL
     Route: 042
     Dates: start: 20191130, end: 20191130
  3. PARACETAMOL [Suspect]
     Active Substance: ACETAMINOPHEN
     Indication: PAIN
     Dosage: 1000 MG TOTAL
     Route: 042
     Dates: start: 20191130, end: 20191130
  4. SUCCINYLCHOLINE CHLORIDE. [Suspect]
     Active Substance: SUCCINYLCHOLINE CHLORIDE
     Indication: GENERAL ANAESTHESIA
     Dosage: 100 MG, ONCE/SINGLE
     Route: 042
     Dates: start: 20191130, end: 20191130
  5. PROPOFOL FRESENIUS [Suspect]
     Active Substance: PROPOFOL
     Indication: GENERAL ANAESTHESIA
     Dosage: 200 MG TOTAL
     Route: 042
     Dates: start: 20191130, end: 20191130

REACTIONS (3)
  - Bronchospasm [Recovered/Resolved with Sequelae]
  - Cardio-respiratory arrest [Recovered/Resolved with Sequelae]
  - Anaphylactic shock [Not Recovered/Not Resolved]

NARRATIVE: CASE EVENT DATE: 20191130
